FAERS Safety Report 9832970 (Version 2)
Quarter: 2014Q1

REPORT INFORMATION
  Report Type: Report from Study
  Country: FR (occurrence: FR)
  Receive Date: 20140121
  Receipt Date: 20140305
  Transmission Date: 20141002
  Serious: Yes (Other)
  Sender: FDA-Public Use
  Company Number: FR-TEVA-457226ISR

PATIENT
  Age: 73 Year
  Sex: Male
  Weight: 89.1 kg

DRUGS (23)
  1. TRISENOX [Suspect]
  2. VESANOID [Suspect]
  3. ADALATE LP 20 MG [Concomitant]
     Dosage: 20 MILLIGRAM DAILY;
     Route: 048
  4. ATACAND 8 MG [Concomitant]
     Dosage: 4 MILLIGRAM DAILY;
     Route: 048
  5. ATENOLOL 50 MG [Concomitant]
     Dosage: 50 MILLIGRAM DAILY;
     Route: 048
  6. CETIRIZINE 10 MG [Concomitant]
     Route: 048
  7. DIFFU K 600 MG [Concomitant]
     Dosage: 4800 MILLIGRAM DAILY;
     Route: 048
  8. FUNGIZONE 10% [Concomitant]
     Dosage: 1 DOSAGE FORMS DAILY;
     Route: 048
  9. INEXIUM 20 MG [Concomitant]
     Dosage: 20 MILLIGRAM DAILY;
     Route: 048
  10. VALACICLOVIR [Concomitant]
     Dosage: 1000 MILLIGRAM DAILY;
     Route: 048
  11. ATARAX 25 MG [Concomitant]
     Dosage: 25 MILLIGRAM DAILY;
     Route: 048
  12. GAVISCON 10 ML [Concomitant]
     Dosage: 10 ML DAILY;
     Route: 048
  13. BECLO-RHINO 50 MCGG/DOSE [Concomitant]
     Dosage: 2 DOSAGE FORMS DAILY; DOSAGE FORM: PUFF
     Route: 045
  14. CELLUVISC 4 MG/4 ML [Concomitant]
     Dosage: 6 GTT DAILY;
     Route: 047
  15. CROMEDIL 2% [Concomitant]
     Dosage: 4 GTT DAILY;
     Route: 047
  16. FUCIDINE 2% [Concomitant]
     Dosage: 2 DOSAGE FORMS DAILY; ON THE EYELIDS
     Route: 003
  17. SODIUM CHLORURE 10 ML [Concomitant]
     Dosage: 2 DOSAGE FORMS DAILY; 2 INSTILLATIONS DAILY
     Route: 047
  18. SPIRIVA 18MCG HANDIHALER [Concomitant]
     Dosage: 18 MICROGRAM DAILY;
     Route: 055
  19. TITANOREINE [Concomitant]
     Dosage: 2 DOSAGE FORMS DAILY; DOSAGE FORM: APPLICATION
     Route: 054
  20. TOBRADEX COLLYRE 5 ML [Concomitant]
     Dosage: 4 GTT DAILY;
     Route: 047
  21. VITAMINE A [Concomitant]
     Dosage: 3 DOSAGE FORMS DAILY;
     Route: 047
  22. ELUDRIL GE 0.5ML/0.5MG [Concomitant]
     Dosage: 1 DOSAGE FORMS DAILY;
     Route: 002
  23. SODIUM BICARBONATE 1.4% VERSABLE 500ML [Concomitant]
     Dosage: 1 DOSAGE FORMS DAILY;
     Route: 002

REACTIONS (8)
  - Renal failure acute [Unknown]
  - Hypercalcaemia [Unknown]
  - Adrenal insufficiency [Unknown]
  - Device related sepsis [Unknown]
  - Conjunctivitis [Unknown]
  - Eyelid erosion [Unknown]
  - Staphylococcal infection [Unknown]
  - Mucosal inflammation [Unknown]
